FAERS Safety Report 9219765 (Version 1)
Quarter: 2013Q2

REPORT INFORMATION
  Report Type: Spontaneous
  Country: US (occurrence: None)
  Receive Date: 20130408
  Receipt Date: 20130408
  Transmission Date: 20140414
  Serious: Yes (Hospitalization)
  Sender: FDA-Public Use
  Company Number: None

PATIENT
  Age: 52 Year
  Sex: Female

DRUGS (2)
  1. PEGASYS [Suspect]
     Dosage: 180MCG  QW  SQ
     Route: 058
     Dates: start: 20121215
  2. RIBAPAK [Suspect]
     Dosage: 600MG  BID  PO
     Route: 048
     Dates: start: 20121215

REACTIONS (2)
  - Urticaria [None]
  - Red blood cell count decreased [None]
